FAERS Safety Report 6853805-1 (Version None)
Quarter: 2010Q3

REPORT INFORMATION
  Report Type: 
  Country: None (occurrence: None)
  Receive Date: 20100717
  Receipt Date: 20071214
  Transmission Date: 20110219
  Serious: No
  Sender: FDA-Public Use
  Company Number: US-PFIZER INC-2007106797

PATIENT
  Sex: Male

DRUGS (2)
  1. CHANTIX [Suspect]
     Dates: start: 20070101, end: 20071201
  2. DRUG, UNSPECIFIED [Concomitant]
     Indication: THYROID DISORDER

REACTIONS (3)
  - ABNORMAL DREAMS [None]
  - DIZZINESS [None]
  - INSOMNIA [None]
